FAERS Safety Report 7467400-7 (Version None)
Quarter: 2011Q2

REPORT INFORMATION
  Report Type: 
  Country: None (occurrence: None)
  Receive Date: 20110509
  Receipt Date: 20101229
  Transmission Date: 20111010
  Serious: No
  Sender: FDA-Public Use
  Company Number: US-ALEXION-A201001680

PATIENT

DRUGS (8)
  1. SOLIRIS [Suspect]
     Dosage: 900 MG, UNK
     Route: 042
  2. PROGRAF [Concomitant]
     Indication: LIVER TRANSPLANT
     Dosage: 0.5 MG AND 1 MG
  3. TYLENOL (CAPLET) [Concomitant]
     Dosage: UNK
  4. PRILOSEC [Concomitant]
     Dosage: UNK
  5. SENOKOT [Concomitant]
     Dosage: UNK
  6. MULTI-VITAMINS [Concomitant]
     Dosage: UNK
  7. SOLIRIS [Suspect]
     Indication: PAROXYSMAL NOCTURNAL HAEMOGLOBINURIA
     Dosage: UNK
     Route: 042
     Dates: start: 20090924
  8. COUMADIN [Concomitant]
     Indication: THROMBOSIS
     Dosage: UNK

REACTIONS (1)
  - PARONYCHIA [None]
